FAERS Safety Report 9730183 (Version 1)
Quarter: 2013Q4

REPORT INFORMATION
  Report Type: Spontaneous
  Country: US (occurrence: US)
  Receive Date: 20131204
  Receipt Date: 20131204
  Transmission Date: 20140711
  Serious: No
  Sender: FDA-Public Use
  Company Number: US-ENDO PHARMACEUTICALS INC.-APIR20110043

PATIENT
  Sex: Female

DRUGS (1)
  1. ALPRAZOLAM IR TABLETS 0.5MG [Suspect]
     Indication: INSOMNIA
     Route: 048
     Dates: start: 2011

REACTIONS (2)
  - Drug ineffective for unapproved indication [Unknown]
  - Abnormal dreams [Unknown]
